FAERS Safety Report 21810573 (Version 1)
Quarter: 2023Q1

REPORT INFORMATION
  Report Type: Spontaneous
  Country: US (occurrence: US)
  Receive Date: 20230103
  Receipt Date: 20230103
  Transmission Date: 20230418
  Serious: Yes (Hospitalization)
  Sender: FDA-Public Use
  Company Number: US-MYLANLABS-2022M1144586

PATIENT
  Age: 2 Month
  Sex: Female
  Weight: 6 kg

DRUGS (27)
  1. DEXMEDETOMIDINE [Suspect]
     Active Substance: DEXMEDETOMIDINE
     Indication: Sedation
     Dosage: 0.3 MICROGRAM/KILOGRAM, QH; INFUSION
     Route: 042
  2. DEXMEDETOMIDINE [Suspect]
     Active Substance: DEXMEDETOMIDINE
     Indication: Analgesic therapy
     Dosage: 0.5 MICROGRAM/KILOGRAM, QH; INFUSION
     Route: 042
  3. DEXMEDETOMIDINE [Suspect]
     Active Substance: DEXMEDETOMIDINE
     Dosage: UNK; WEANED BY 0.1 MICROG/KG/H EVERY 8 HOURS IN AN ALTERNATING SCHEDULE?.
     Route: 042
  4. KETAMINE [Suspect]
     Active Substance: KETAMINE
     Indication: Analgesic therapy
     Dosage: 5 MICROGRAM/KILOGRAM, QMINUTE; INFUSION
     Route: 042
  5. KETAMINE [Suspect]
     Active Substance: KETAMINE
     Indication: Sedation
     Dosage: 20 MICROGRAM/KILOGRAM, QMINUTE; INFUSION
     Route: 042
  6. KETAMINE [Suspect]
     Active Substance: KETAMINE
     Dosage: UNK; WEANED BY 5 MICROG/KG/MIN EVERY 8 HOURS UNTIL DISCONTINUATION
     Route: 042
  7. MORPHINE [Concomitant]
     Active Substance: MORPHINE
     Indication: Analgesic therapy
     Dosage: 0.1 MILLIGRAM/KILOGRAM, QH
     Route: 042
  8. MORPHINE [Concomitant]
     Active Substance: MORPHINE
     Indication: Sedation
     Dosage: 0.4 MILLIGRAM/KILOGRAM, QH
     Route: 042
  9. MEROPENEM [Concomitant]
     Active Substance: MEROPENEM
     Indication: Enterobacter infection
     Dosage: UNK
     Route: 065
  10. MEROPENEM [Concomitant]
     Active Substance: MEROPENEM
     Indication: Tracheitis
  11. SULFAMETHOXAZOLE\TRIMETHOPRIM [Concomitant]
     Active Substance: SULFAMETHOXAZOLE\TRIMETHOPRIM
     Indication: Stenotrophomonas infection
     Dosage: UNK
     Route: 065
  12. FENTANYL [Concomitant]
     Active Substance: FENTANYL
     Indication: Sedation
     Dosage: 0.3 MICROGRAM/KILOGRAM, QH; INFUSION
     Route: 042
  13. FENTANYL [Concomitant]
     Active Substance: FENTANYL
     Indication: Analgesic therapy
  14. METHADONE [Concomitant]
     Active Substance: METHADONE HYDROCHLORIDE
     Indication: Sedation
     Dosage: 0.1 MILLIGRAM/KILOGRAM, Q6H; ENTERAL
     Route: 065
  15. METHADONE [Concomitant]
     Active Substance: METHADONE HYDROCHLORIDE
     Indication: Analgesic therapy
     Dosage: UNK TAPERED AND MAINTAINED
     Route: 065
  16. MIDAZOLAM [Concomitant]
     Active Substance: MIDAZOLAM
     Indication: Sedation
     Dosage: 0.05 MILLIGRAM/KILOGRAM, QH
     Route: 042
  17. MIDAZOLAM [Concomitant]
     Active Substance: MIDAZOLAM
     Indication: Analgesic therapy
     Dosage: SLOWLY TAPERED
     Route: 042
  18. CLONIDINE [Concomitant]
     Active Substance: CLONIDINE
     Indication: Product used for unknown indication
     Dosage: 2 MICROGRAM/KILOGRAM, Q8H; ENTERAL
     Route: 065
  19. CLONIDINE [Concomitant]
     Active Substance: CLONIDINE
     Dosage: TAPERED AND MAINTAINED
     Route: 065
  20. DIAZEPAM [Concomitant]
     Active Substance: DIAZEPAM
     Indication: Product used for unknown indication
     Dosage: 0.2 MILLIGRAM/KILOGRAM, Q6H; ENTERAL
     Route: 065
  21. DIAZEPAM [Concomitant]
     Active Substance: DIAZEPAM
     Dosage: TAPERED AND MAINTAINED
     Route: 065
  22. HYDROMORPHONE [Concomitant]
     Active Substance: HYDROMORPHONE
     Indication: Analgesic therapy
     Dosage: 0.04 MILLIGRAM/KILOGRAM, QH
     Route: 042
  23. HYDROMORPHONE [Concomitant]
     Active Substance: HYDROMORPHONE
     Dosage: SLOWLY TAPERED
     Route: 042
  24. HYDROCORTISONE [Concomitant]
     Active Substance: HYDROCORTISONE
     Indication: Ventricular dysfunction
     Dosage: UNK; INTRAVENOUS (NOT SPECIFIED)
     Route: 042
  25. EPINEPHRINE [Concomitant]
     Active Substance: EPINEPHRINE
     Indication: Ventricular dysfunction
     Dosage: UNK
     Route: 042
  26. VASOPRESSIN [Concomitant]
     Active Substance: VASOPRESSIN
     Indication: Ventricular dysfunction
     Dosage: UNK
     Route: 042
  27. LEVOTHYROXINE SODIUM [Concomitant]
     Active Substance: LEVOTHYROXINE SODIUM
     Indication: Ventricular dysfunction
     Dosage: UNK; INTRAVENOUS (NOT SPECIFIED)
     Route: 042

REACTIONS (2)
  - Withdrawal syndrome [Recovered/Resolved]
  - Off label use [Unknown]
